FAERS Safety Report 10269074 (Version 2)
Quarter: 2014Q2

REPORT INFORMATION
  Report Type: Report from Study
  Country: BR (occurrence: BR)
  Receive Date: 20140630
  Receipt Date: 20140630
  Transmission Date: 20141212
  Serious: Yes (Hospitalization)
  Sender: FDA-Public Use
  Company Number: BR-ABBVIE-10P-020-0664764-00

PATIENT
  Age: 66 Year
  Sex: Female
  Weight: 87 kg

DRUGS (9)
  1. HUMIRA [Suspect]
     Indication: RHEUMATOID ARTHRITIS
     Route: 058
     Dates: start: 20090107, end: 201402
  2. HUMIRA [Suspect]
     Route: 058
     Dates: start: 201403
  3. METICORTEN [Suspect]
     Indication: ARTHRITIS
     Route: 048
     Dates: start: 20130617
  4. ENALAPRIL MALEATE [Concomitant]
     Indication: HYPERTENSION
     Route: 048
     Dates: start: 20020617
  5. PANTOPRAZOLE [Concomitant]
     Indication: GASTRIC DISORDER
     Route: 048
     Dates: start: 20000617
  6. PANTOPRAZOLE [Concomitant]
     Indication: PROPHYLAXIS
  7. BROMOPRIDE [Concomitant]
     Indication: DYSPEPSIA
     Route: 048
  8. DEFLANIL [Concomitant]
     Indication: RHEUMATOID ARTHRITIS
     Route: 048
     Dates: start: 2005
  9. CHLORTALIDONE [Concomitant]
     Indication: DIURETIC THERAPY
     Route: 048
     Dates: start: 2006

REACTIONS (23)
  - Procedural pain [Recovered/Resolved]
  - Gastric haemorrhage [Recovered/Resolved]
  - Diarrhoea [Recovering/Resolving]
  - Procedural pain [Recovered/Resolved]
  - Haemorrhage urinary tract [Recovered/Resolved]
  - Incision site infection [Recovering/Resolving]
  - Inappropriate schedule of drug administration [Unknown]
  - Headache [Recovered/Resolved]
  - Retching [Not Recovered/Not Resolved]
  - Oesophageal discomfort [Not Recovered/Not Resolved]
  - Pain in extremity [Not Recovered/Not Resolved]
  - Peripheral swelling [Not Recovered/Not Resolved]
  - Dyspnoea [Not Recovered/Not Resolved]
  - Injection site pain [Not Recovered/Not Resolved]
  - Injection site pain [Not Recovered/Not Resolved]
  - Blood cholesterol abnormal [Not Recovered/Not Resolved]
  - Skin disorder [Not Recovered/Not Resolved]
  - Suture related complication [Recovered/Resolved]
  - Medication error [Recovered/Resolved]
  - Fatigue [Not Recovered/Not Resolved]
  - Fatigue [Not Recovered/Not Resolved]
  - Procedural pain [Not Recovered/Not Resolved]
  - Gastrointestinal haemorrhage [Unknown]
